FAERS Safety Report 13800522 (Version 1)
Quarter: 2017Q3

REPORT INFORMATION
  Report Type: Report from Study
  Country: PL (occurrence: PL)
  Receive Date: 20170727
  Receipt Date: 20170727
  Transmission Date: 20171127
  Serious: Yes (Hospitalization)
  Sender: FDA-Public Use
  Company Number: PL-LEO PHARMA-303431

PATIENT
  Age: 7 Year
  Sex: Female
  Weight: 24 kg

DRUGS (8)
  1. ENCORTON [Concomitant]
     Active Substance: PREDNISONE
     Indication: DERMATITIS ATOPIC
     Route: 048
     Dates: start: 201609
  2. HEVIRAN [Concomitant]
     Active Substance: ACYCLOVIR
     Indication: DERMATITIS ATOPIC
     Route: 048
  3. PROTOPIC [Suspect]
     Active Substance: TACROLIMUS
     Route: 061
     Dates: start: 20170523
  4. PROTOPIC [Suspect]
     Active Substance: TACROLIMUS
     Indication: DERMATITIS ATOPIC
     Dosage: TUBE SIZE 10 GRAMS - 5 TUBES APPLIED (50 GRAMS)
     Route: 061
  5. RUPAFIN [Concomitant]
     Active Substance: RUPATADINE FUMARATE
     Indication: DERMATITIS ATOPIC
     Route: 048
     Dates: start: 201609
  6. TRIDERM [Concomitant]
     Active Substance: TRIAMCINOLONE ACETONIDE
     Indication: PRODUCT USED FOR UNKNOWN INDICATION
     Dates: start: 201612
  7. HYDROXYZYNA [Concomitant]
     Active Substance: FLUOXETINE HYDROCHLORIDE
     Indication: DERMATITIS ATOPIC
     Route: 048
     Dates: start: 201606
  8. PULMICORT TURBUHALER [Concomitant]
     Active Substance: BUDESONIDE
     Indication: PRODUCT USED FOR UNKNOWN INDICATION

REACTIONS (2)
  - Hypersensitivity [Unknown]
  - Dermatitis atopic [Unknown]

NARRATIVE: CASE EVENT DATE: 20170524
